FAERS Safety Report 17336128 (Version 2)
Quarter: 2020Q1

REPORT INFORMATION
  Report Type: Spontaneous
  Country: PT (occurrence: PT)
  Receive Date: 20200128
  Receipt Date: 20200214
  Transmission Date: 20200409
  Serious: Yes (Hospitalization)
  Sender: FDA-Public Use
  Company Number: PT-ACCORD-171027

PATIENT
  Age: 82 Year
  Sex: Male
  Weight: 79 kg

DRUGS (2)
  1. CAPECITABINA ACCORD [Suspect]
     Active Substance: CAPECITABINE
     Indication: RECTAL CANCER
     Dosage: 1500MG/12H
     Route: 048
     Dates: start: 20191210, end: 20191210
  2. METOCLOPRAMIDE. [Concomitant]
     Active Substance: METOCLOPRAMIDE
     Dosage: 20MG/6 HOURS

REACTIONS (2)
  - Colitis [Recovered/Resolved with Sequelae]
  - Colostomy [Recovered/Resolved with Sequelae]

NARRATIVE: CASE EVENT DATE: 20191230
